FAERS Safety Report 6307178-3 (Version None)
Quarter: 2009Q3

REPORT INFORMATION
  Report Type: 
  Country: None (occurrence: None)
  Receive Date: 20090813
  Receipt Date: 20090803
  Transmission Date: 20100115
  Serious: Yes (Other)
  Sender: FDA-Public Use
  Company Number: US-BIOGENIDEC-2009BI025144

PATIENT
  Sex: Female

DRUGS (1)
  1. TYSABRI [Suspect]
     Indication: CROHN'S DISEASE
     Route: 042
     Dates: start: 20050101, end: 20050201

REACTIONS (8)
  - ABDOMINAL DISCOMFORT [None]
  - ANAPHYLACTIC SHOCK [None]
  - CENTRAL VENOUS CATHETERISATION [None]
  - DECREASED APPETITE [None]
  - DIARRHOEA [None]
  - RECTAL HAEMORRHAGE [None]
  - SWELLING [None]
  - WHITE BLOOD CELL COUNT INCREASED [None]
